FAERS Safety Report 13261741 (Version 1)
Quarter: 2017Q1

REPORT INFORMATION
  Report Type: Spontaneous
  Country: AE (occurrence: AE)
  Receive Date: 20170222
  Receipt Date: 20170222
  Transmission Date: 20170428
  Serious: Yes (Hospitalization)
  Sender: FDA-Public Use
  Company Number: AE-TEVA-741096ISR

PATIENT
  Age: 25 Year
  Sex: Female

DRUGS (2)
  1. AZILECT [Suspect]
     Active Substance: RASAGILINE MESYLATE
     Dates: start: 201509
  2. ROTIGOTINE [Concomitant]
     Active Substance: ROTIGOTINE

REACTIONS (1)
  - Hypoglycaemia [Recovered/Resolved]
